FAERS Safety Report 5750585-8 (Version None)
Quarter: 2008Q2

REPORT INFORMATION
  Report Type: 
  Country: None (occurrence: None)
  Receive Date: 20080528
  Receipt Date: 20080527
  Transmission Date: 20081010
  Serious: Yes (Other)
  Sender: FDA-Public Use
  Company Number: US-BAYER-200815449NA

PATIENT
  Age: 28 Year
  Sex: Female

DRUGS (1)
  1. AVELOX [Suspect]
     Indication: PYREXIA
     Dosage: TOTAL DAILY DOSE: 400 MG  UNIT DOSE: 400 MG
     Route: 048
     Dates: start: 20080201, end: 20080201

REACTIONS (5)
  - DYSPNOEA [None]
  - MENTAL STATUS CHANGES [None]
  - SELF-INJURIOUS IDEATION [None]
  - TACHYCARDIA [None]
  - VIOLENCE-RELATED SYMPTOM [None]
